FAERS Safety Report 5339495-8 (Version None)
Quarter: 2007Q2

REPORT INFORMATION
  Report Type: 
  Country: None (occurrence: None)
  Receive Date: 20070525
  Receipt Date: 20070509
  Transmission Date: 20071010
  Serious: Yes (Hospitalization)
  Sender: FDA-Public Use
  Company Number: 100#03#2007-01655

PATIENT
  Age: 39 Year
  Sex: Female

DRUGS (3)
  1. DESMOPRESSIN ACETATE [Suspect]
     Indication: HYPOPITUITARISM
  2. LEVOTHYROXINE SODIUM (LEVOTHYROXINE SODIUM) (THYROXINE) [Concomitant]
  3. ... [Concomitant]

REACTIONS (11)
  - APALLIC SYNDROME [None]
  - CENTRAL PONTINE MYELINOLYSIS [None]
  - CONVULSION [None]
  - DYSARTHRIA [None]
  - DYSPHASIA [None]
  - GASTROENTERITIS [None]
  - GENERAL PHYSICAL HEALTH DETERIORATION [None]
  - HEMIPLEGIA [None]
  - HYPONATRAEMIA [None]
  - HYPOTENSION [None]
  - RESPIRATORY DISORDER [None]
